FAERS Safety Report 6064955-4 (Version None)
Quarter: 2009Q1

REPORT INFORMATION
  Report Type: 
  Country: None (occurrence: None)
  Receive Date: 20090204
  Receipt Date: 20090123
  Transmission Date: 20090719
  Serious: Yes (Other)
  Sender: FDA-Public Use
  Company Number: US-AVENTIS-200716003US

PATIENT
  Sex: Female

DRUGS (1)
  1. KETEK [Suspect]
     Indication: SINUSITIS
     Dosage: DOSE: UNK
     Route: 048
     Dates: start: 20050805

REACTIONS (11)
  - ARTHRALGIA [None]
  - AUTOIMMUNE HEPATITIS [None]
  - CARPAL TUNNEL SYNDROME [None]
  - CHOLELITHIASIS [None]
  - DEPRESSION [None]
  - FATIGUE [None]
  - HEPATOTOXICITY [None]
  - JAUNDICE [None]
  - LIVER DISORDER [None]
  - PANCREATITIS [None]
  - POLYARTHRITIS [None]
